FAERS Safety Report 9657106 (Version 2)
Quarter: 2013Q4

REPORT INFORMATION
  Report Type: Spontaneous
  Country: CH (occurrence: CH)
  Receive Date: 20131030
  Receipt Date: 20131211
  Transmission Date: 20140711
  Serious: Yes (Other)
  Sender: FDA-Public Use
  Company Number: CH-AMGEN-CHESP2013075322

PATIENT
  Age: 25 Year
  Sex: Female

DRUGS (7)
  1. ARANESP [Suspect]
     Indication: PRODUCT USED FOR UNKNOWN INDICATION
     Dosage: 100-150 MG, QWK
     Route: 065
     Dates: start: 20121018
  2. RITUXIMAB [Suspect]
     Indication: GRANULOMATOSIS WITH POLYANGIITIS
     Dosage: 700 MG, 4 TOTAL DOSE
     Route: 065
     Dates: start: 20121019, end: 20121109
  3. PREDNISONE [Suspect]
     Indication: GRANULOMATOSIS WITH POLYANGIITIS
     Dosage: 75 MG, QD
     Route: 065
     Dates: start: 20121018
  4. IMUREK /00001502/ [Suspect]
     Indication: GRANULOMATOSIS WITH POLYANGIITIS
     Dosage: 50-100 MG, QD UNTIL POSTPARTAL
     Route: 065
     Dates: start: 20121118
  5. CO-TRIMOXAZOL [Suspect]
     Indication: PRODUCT USED FOR UNKNOWN INDICATION
     Dosage: 800/160 MG, Q3WK UNTIL GESTATION WEEK 18
     Route: 065
     Dates: start: 20121018, end: 201212
  6. TRANDATE [Suspect]
     Indication: RENAL HYPERTENSION
     Dosage: 600-2400 MG, QD UNTIL POSTPARTAL
     Route: 065
     Dates: start: 20121018
  7. ALDOMET [Suspect]
     Indication: RENAL HYPERTENSION
     Dosage: 600 MG, QD
     Route: 065
     Dates: start: 201212

REACTIONS (12)
  - Pre-eclampsia [Unknown]
  - Granulomatosis with polyangiitis [Unknown]
  - Glomerulonephritis rapidly progressive [Unknown]
  - Renal impairment [Unknown]
  - Eyelid oedema [Unknown]
  - Nausea [Unknown]
  - Vomiting [Unknown]
  - Headache [Unknown]
  - Oedema [Unknown]
  - Hypertension [Recovering/Resolving]
  - Rhinitis [Unknown]
  - Polyarthritis [Unknown]
